FAERS Safety Report 10250126 (Version 1)
Quarter: 2014Q2

REPORT INFORMATION
  Report Type: Spontaneous
  Country: US (occurrence: US)
  Receive Date: 20140620
  Receipt Date: 20140620
  Transmission Date: 20141212
  Serious: Yes (Other)
  Sender: FDA-Public Use
  Company Number: US-BRISTOL-MYERS SQUIBB COMPANY-20677142

PATIENT
  Age: 84 Year
  Sex: Female
  Weight: 73 kg

DRUGS (9)
  1. ELIQUIS [Suspect]
     Indication: ATRIAL FIBRILLATION
     Dates: start: 20140324, end: 20140326
  2. SYMBICORT [Concomitant]
  3. SYNTHROID [Concomitant]
  4. PROTONIX [Concomitant]
  5. PREDNISONE [Concomitant]
  6. REQUIP [Concomitant]
  7. SIMVASTATIN [Concomitant]
  8. SPIRIVA [Concomitant]
  9. VALSARTAN [Concomitant]

REACTIONS (2)
  - Abdominal wall haematoma [Unknown]
  - Haemoglobin decreased [Unknown]
